FAERS Safety Report 9693308 (Version 3)
Quarter: 2013Q4

REPORT INFORMATION
  Report Type: Spontaneous
  Country: US (occurrence: None)
  Receive Date: 20131114
  Receipt Date: 20131127
  Transmission Date: 20140711
  Serious: Yes (Other)
  Sender: FDA-Public Use
  Company Number: 2013-US-002814

PATIENT
  Age: 62 Year
  Sex: Male

DRUGS (1)
  1. XYREM [Suspect]
     Indication: FIBROMYALGIA
     Route: 048
     Dates: start: 200808, end: 2008

REACTIONS (4)
  - Myocardial infarction [None]
  - Coronary arterial stent insertion [None]
  - Arthropathy [None]
  - Arthropathy [None]
